FAERS Safety Report 10514013 (Version 1)
Quarter: 2014Q4

REPORT INFORMATION
  Report Type: Spontaneous
  Country: US (occurrence: US)
  Receive Date: 20141013
  Receipt Date: 20141013
  Transmission Date: 20150528
  Serious: Yes (Other)
  Sender: FDA-Public Use
  Company Number: US-PFIZER INC-2014277460

PATIENT
  Sex: Female

DRUGS (5)
  1. NEURONTIN [Suspect]
     Active Substance: GABAPENTIN
     Dosage: 2400 MG, DAILY
     Dates: start: 201409, end: 201409
  2. NEURONTIN [Suspect]
     Active Substance: GABAPENTIN
     Dosage: 1600 MG, DAILY
     Dates: start: 201409, end: 2014
  3. NEURONTIN [Suspect]
     Active Substance: GABAPENTIN
     Dosage: 1200 MG, DAILY
     Dates: start: 2014, end: 2014
  4. NEURONTIN [Suspect]
     Active Substance: GABAPENTIN
     Indication: PAIN
     Dosage: 3600 MG, DAILY
     Dates: start: 201403, end: 20140912
  5. NEURONTIN [Suspect]
     Active Substance: GABAPENTIN
     Dosage: 800 MG, DAILY
     Dates: start: 2014

REACTIONS (6)
  - Abdominal discomfort [Unknown]
  - Loss of consciousness [Unknown]
  - Palpitations [Unknown]
  - Abdominal distension [Unknown]
  - Flatulence [Unknown]
  - Constipation [Unknown]

NARRATIVE: CASE EVENT DATE: 2014
